FAERS Safety Report 6113831 (Version 7)
Quarter: 2015Q3

REPORT INFORMATION
  Report Type: Spontaneous
  Country: CA (occurrence: CA)
  Receive Date: 20060823
  Receipt Date: 20150914
  Transmission Date: 20151125
  Serious: Yes (Other)
  Sender: FDA-Public Use
  Company Number: CA-JNJFOC-20060703121

PATIENT
  Age: 68 Year
  Sex: Male

DRUGS (15)
  1. RISPERDAL [Suspect]
     Active Substance: RISPERIDONE
     Indication: SCHIZOPHRENIA
     Route: 048
  2. RISPERDAL CONSTA [Suspect]
     Active Substance: RISPERIDONE
     Indication: PRODUCT USED FOR UNKNOWN INDICATION
     Route: 030
     Dates: start: 2009
  3. RISPERDAL [Suspect]
     Active Substance: RISPERIDONE
     Indication: SCHIZOPHRENIA
     Route: 048
     Dates: start: 199609, end: 20060717
  4. RISPERDAL [Suspect]
     Active Substance: RISPERIDONE
     Indication: SCHIZOPHRENIA
     Route: 048
  5. ZITHROMAX [Concomitant]
     Active Substance: AZITHROMYCIN DIHYDRATE
     Dates: start: 20061219, end: 20070131
  6. ZYPREXA [Concomitant]
     Active Substance: OLANZAPINE
     Dates: start: 20060717, end: 20070418
  7. RISPERDAL [Suspect]
     Active Substance: RISPERIDONE
     Indication: SCHIZOPHRENIA
     Route: 048
     Dates: start: 20070418, end: 20071103
  8. IRON [Concomitant]
     Active Substance: IRON
     Dates: start: 2007
  9. TEQUIN [Concomitant]
     Active Substance: GATIFLOXACIN
     Indication: PRODUCT USED FOR UNKNOWN INDICATION
  10. AUGMENTIN [Concomitant]
     Active Substance: AMOXICILLIN\CLAVULANATE POTASSIUM
     Indication: PRODUCT USED FOR UNKNOWN INDICATION
     Dates: start: 20061219, end: 20070131
  11. BIAXIN [Concomitant]
     Active Substance: CLARITHROMYCIN
     Dates: start: 20071009, end: 20071118
  12. NOVAMOXIN [Concomitant]
     Indication: PRODUCT USED FOR UNKNOWN INDICATION
     Dates: start: 20030613, end: 20030911
  13. AMOXACILLIN [Concomitant]
     Indication: PNEUMONIA
     Dates: start: 20060607, end: 20060730
  14. STELAZINE [Concomitant]
     Active Substance: TRIFLUOPERAZINE HYDROCHLORIDE
     Dates: end: 199510
  15. CIPRO [Concomitant]
     Active Substance: CIPROFLOXACIN HYDROCHLORIDE

REACTIONS (20)
  - Tooth injury [Unknown]
  - Limb discomfort [Recovered/Resolved]
  - General physical condition abnormal [Unknown]
  - Urinary tract disorder [Unknown]
  - Sleep inertia [Unknown]
  - Pneumonia [Recovered/Resolved]
  - Abdominal discomfort [Recovered/Resolved]
  - Nasal mucosal disorder [Recovered/Resolved]
  - Respiratory tract infection [Unknown]
  - Red blood cell count decreased [Not Recovered/Not Resolved]
  - Osteoarthritis [Recovered/Resolved]
  - Respiratory disorder [Unknown]
  - Chest discomfort [Unknown]
  - White blood cell count decreased [Recovered/Resolved]
  - Cataract [Not Recovered/Not Resolved]
  - Therapeutic response unexpected [Unknown]
  - Lymphocyte count decreased [Unknown]
  - Influenza [Recovered/Resolved]
  - Excessive cerumen production [Recovered/Resolved]
  - Skin exfoliation [Recovered/Resolved]

NARRATIVE: CASE EVENT DATE: 20060607
